FAERS Safety Report 11699060 (Version 3)
Quarter: 2015Q4

REPORT INFORMATION
  Report Type: Spontaneous
  Country: US (occurrence: US)
  Receive Date: 20151104
  Receipt Date: 20151117
  Transmission Date: 20160304
  Serious: Yes (Other)
  Sender: FDA-Public Use
  Company Number: CHPA2014US014193

PATIENT
  Age: 72 Year
  Sex: Male

DRUGS (1)
  1. VOLTAREN [Suspect]
     Active Substance: DICLOFENAC SODIUM
     Indication: ARTHRITIS
     Dosage: 2/3 DOWN LITTLE FINGER, QD PRN
     Route: 061
     Dates: start: 2014

REACTIONS (14)
  - Joint injury [Recovered/Resolved]
  - Dysphonia [Recovered/Resolved]
  - Influenza like illness [Recovered/Resolved]
  - Dyspepsia [Recovered/Resolved]
  - Abdominal pain upper [Recovered/Resolved]
  - Musculoskeletal discomfort [Recovered/Resolved]
  - Sneezing [Recovered/Resolved]
  - Feeling abnormal [Unknown]
  - Wrong technique in product usage process [Unknown]
  - Dizziness [Recovered/Resolved]
  - Cough [Recovered/Resolved]
  - Nasal congestion [Recovered/Resolved]
  - Inappropriate schedule of drug administration [Unknown]
  - Drug administered at inappropriate site [Unknown]

NARRATIVE: CASE EVENT DATE: 2014
